FAERS Safety Report 5753665-6 (Version None)
Quarter: 2008Q2

REPORT INFORMATION
  Report Type: 
  Country: None (occurrence: None)
  Receive Date: 20080527
  Receipt Date: 20080515
  Transmission Date: 20081010
  Serious: Yes (Hospitalization)
  Sender: FDA-Public Use
  Company Number: S08-USA-01794-01

PATIENT
  Age: 69 Year
  Sex: Male
  Weight: 61 kg

DRUGS (5)
  1. THEOPHYLLINE [Suspect]
  2. FUROSEMIDE [Suspect]
  3. COMPAZINE [Suspect]
  4. TEMODAR [Suspect]
     Indication: GLIOBLASTOMA MULTIFORME
     Dates: start: 20080229
  5. DIGOXIN [Suspect]

REACTIONS (8)
  - ANOREXIA [None]
  - BALANCE DISORDER [None]
  - BRAIN OEDEMA [None]
  - HYPOXIA [None]
  - LOCALISED OEDEMA [None]
  - MUSCULAR WEAKNESS [None]
  - NAUSEA [None]
  - VOMITING [None]
